FAERS Safety Report 17534924 (Version 5)
Quarter: 2021Q1

REPORT INFORMATION
  Report Type: Spontaneous
  Country: US (occurrence: US)
  Receive Date: 20200312
  Receipt Date: 20210225
  Transmission Date: 20210419
  Serious: No
  Sender: FDA-Public Use
  Company Number: US-AKCEA THERAPEUTICS-2020IS001003

PATIENT
  Age: 79 Year
  Sex: Male

DRUGS (3)
  1. ISSD (INTEGRATED SYRINGE SAFETY DEVICE) [Suspect]
     Active Substance: DEVICE
  2. TEGSEDI [Suspect]
     Active Substance: INOTERSEN SODIUM
     Route: 058
  3. TEGSEDI [Suspect]
     Active Substance: INOTERSEN SODIUM
     Indication: HEREDITARY NEUROPATHIC AMYLOIDOSIS
     Route: 058
     Dates: start: 20190301

REACTIONS (10)
  - Platelet count decreased [Not Recovered/Not Resolved]
  - Glucose urine present [Not Recovered/Not Resolved]
  - Bacterial test positive [Unknown]
  - Urinary casts present [Unknown]
  - Cells in urine [Unknown]
  - Urine abnormality [Unknown]
  - Glomerular filtration rate decreased [Not Recovered/Not Resolved]
  - Blood creatinine increased [Not Recovered/Not Resolved]
  - Urine protein/creatinine ratio abnormal [Unknown]
  - Urine leukocyte esterase positive [Unknown]

NARRATIVE: CASE EVENT DATE: 20200921
